FAERS Safety Report 11312675 (Version 1)
Quarter: 2015Q3

REPORT INFORMATION
  Report Type: Spontaneous
  Country: US (occurrence: US)
  Receive Date: 20150727
  Receipt Date: 20150727
  Transmission Date: 20151125
  Serious: No
  Sender: FDA-Public Use
  Company Number: US-ABBVIE-15P-163-1358829-00

PATIENT
  Sex: Female

DRUGS (4)
  1. PLEXUS [Concomitant]
     Indication: PRODUCT USED FOR UNKNOWN INDICATION
  2. TRI-PLEX [Concomitant]
     Indication: PRODUCT USED FOR UNKNOWN INDICATION
  3. ACCELERATOR PLUS [Concomitant]
     Indication: PRODUCT USED FOR UNKNOWN INDICATION
  4. SYNTHROID [Suspect]
     Active Substance: LEVOTHYROXINE SODIUM
     Indication: PRODUCT USED FOR UNKNOWN INDICATION
     Route: 065

REACTIONS (2)
  - Weight increased [Unknown]
  - Weight decreased [Unknown]
